FAERS Safety Report 10970348 (Version 2)
Quarter: 2015Q2

REPORT INFORMATION
  Report Type: Spontaneous
  Country: JP (occurrence: JP)
  Receive Date: 20150331
  Receipt Date: 20150407
  Transmission Date: 20150821
  Serious: Yes (Other)
  Sender: FDA-Public Use
  Company Number: JP-PFIZER INC-2015106118

PATIENT
  Age: 90 Year
  Sex: Female

DRUGS (1)
  1. ANAEMETRO [Suspect]
     Active Substance: METRONIDAZOLE
     Dosage: UNK
     Route: 041

REACTIONS (1)
  - Drug-induced liver injury [Unknown]
